FAERS Safety Report 10055237 (Version 1)
Quarter: 2014Q2

REPORT INFORMATION
  Report Type: Spontaneous
  Country: AU (occurrence: AU)
  Receive Date: 20140403
  Receipt Date: 20140403
  Transmission Date: 20141212
  Serious: Yes (Other)
  Sender: FDA-Public Use
  Company Number: AU-AMGEN INC.-AUSSP2014023277

PATIENT
  Sex: Male

DRUGS (1)
  1. ENBREL [Suspect]
     Indication: PSORIATIC ARTHROPATHY
     Dosage: UNK, WEEKLY
     Route: 065

REACTIONS (4)
  - Psoriatic arthropathy [Unknown]
  - Malaise [Unknown]
  - Influenza like illness [Unknown]
  - Pain [Unknown]
